FAERS Safety Report 23147543 (Version 1)
Quarter: 2023Q4

REPORT INFORMATION
  Report Type: Spontaneous
  Country: US (occurrence: US)
  Receive Date: 20231106
  Receipt Date: 20231106
  Transmission Date: 20240109
  Serious: Yes (Other)
  Sender: FDA-Public Use
  Company Number: US-GSKCCFUS-Case-01845829_AE-103144

PATIENT

DRUGS (1)
  1. FLOVENT DISKUS [Suspect]
     Active Substance: FLUTICASONE PROPIONATE
     Indication: Asthma
     Dosage: 1 PUFF(S), BID
     Route: 055
     Dates: start: 202310, end: 202310

REACTIONS (3)
  - Suicidal ideation [Recovered/Resolved]
  - Brain fog [Recovered/Resolved]
  - Psychomotor hyperactivity [Recovered/Resolved]
